FAERS Safety Report 19651833 (Version 1)
Quarter: 2021Q3

REPORT INFORMATION
  Report Type: Spontaneous
  Country: US (occurrence: US)
  Receive Date: 20210803
  Receipt Date: 20210803
  Transmission Date: 20211014
  Serious: No
  Sender: FDA-Public Use
  Company Number: US-CELGENEUS-USA-20210706220

PATIENT
  Age: 66 Year
  Sex: Male

DRUGS (1)
  1. REVLIMID [Suspect]
     Active Substance: LENALIDOMIDE
     Indication: FOLLICULAR LYMPHOMA
     Dosage: 20 MILLIGRAM
     Route: 048
     Dates: start: 202107

REACTIONS (5)
  - Hyperhidrosis [Unknown]
  - Back pain [Unknown]
  - Weight increased [Unknown]
  - Dyspnoea [Unknown]
  - Stomatitis [Unknown]

NARRATIVE: CASE EVENT DATE: 202107
